FAERS Safety Report 9161111 (Version 2)
Quarter: 2013Q2

REPORT INFORMATION
  Report Type: Spontaneous
  Country: US (occurrence: US)
  Receive Date: 20130313
  Receipt Date: 20130508
  Transmission Date: 20140414
  Serious: Yes (Other)
  Sender: FDA-Public Use
  Company Number: PHHY2013US022300

PATIENT
  Age: 70 Year
  Sex: Male

DRUGS (8)
  1. METHAZOLAMIDE [Suspect]
     Indication: NORMAL TENSION GLAUCOMA
     Dosage: 1 DF, BID
     Route: 048
  2. METFORMIN [Concomitant]
  3. AMLODIPINE [Concomitant]
  4. OLMESARTAN [Concomitant]
  5. ASPIRIN [Concomitant]
  6. BRIMONIDINE [Concomitant]
  7. DORZOLAMIDE TIMOLOL [Concomitant]
  8. LATANOPROST [Concomitant]

REACTIONS (7)
  - Angle closure glaucoma [Recovered/Resolved]
  - Eye pain [Recovered/Resolved]
  - Visual acuity reduced [Recovered/Resolved]
  - Intraocular pressure increased [Recovered/Resolved]
  - Corneal oedema [Recovered/Resolved]
  - Conjunctival oedema [Recovered/Resolved]
  - Myopia [Recovered/Resolved]
